FAERS Safety Report 8431515-7 (Version None)
Quarter: 2012Q2

REPORT INFORMATION
  Report Type: 
  Country: None (occurrence: None)
  Receive Date: 20120613
  Receipt Date: 20120604
  Transmission Date: 20120825
  Serious: Yes (Hospitalization)
  Sender: FDA-Public Use
  Company Number: US-SANOFI-AVENTIS-2012SA031593

PATIENT
  Sex: Male

DRUGS (2)
  1. LANTUS [Suspect]
     Dosage: DOSE:25 UNIT(S)
     Route: 058
  2. SOLOSTAR [Suspect]

REACTIONS (6)
  - FALL [None]
  - RENAL FAILURE [None]
  - BLOOD GLUCOSE DECREASED [None]
  - DEHYDRATION [None]
  - HERPES ZOSTER OPHTHALMIC [None]
  - CONFUSIONAL STATE [None]
